FAERS Safety Report 16814185 (Version 2)
Quarter: 2019Q4

REPORT INFORMATION
  Report Type: Report from Study
  Country: US (occurrence: US)
  Receive Date: 20190917
  Receipt Date: 20191015
  Transmission Date: 20200122
  Serious: Yes (Hospitalization, Other)
  Sender: FDA-Public Use
  Company Number: US-SA-2019SA253035

PATIENT
  Age: 55 Year
  Sex: Female

DRUGS (2)
  1. ALEMTUZUMAB [Suspect]
     Active Substance: ALEMTUZUMAB
     Indication: MULTIPLE SCLEROSIS
     Dosage: 12 MG, QD
     Route: 041
     Dates: start: 20170815, end: 20170817
  2. ALEMTUZUMAB [Suspect]
     Active Substance: ALEMTUZUMAB
     Dosage: 12 MG, QD
     Route: 041
     Dates: start: 20160725, end: 20160729

REACTIONS (20)
  - Erythema [Recovered/Resolved]
  - Acne [Recovered/Resolved]
  - Breast abscess [Recovered/Resolved]
  - Herpes zoster [Unknown]
  - Lymphocyte count decreased [Not Recovered/Not Resolved]
  - Malaise [Unknown]
  - Breast mass [Recovered/Resolved]
  - Pain [Recovered/Resolved]
  - Pneumonia [Recovered/Resolved]
  - CD4 lymphocytes decreased [Not Recovered/Not Resolved]
  - Cough [Unknown]
  - Subcutaneous abscess [Recovered/Resolved]
  - Rash [Not Recovered/Not Resolved]
  - Headache [Unknown]
  - Breast pain [Recovered/Resolved]
  - Thyroid hormones decreased [Not Recovered/Not Resolved]
  - Arthropod bite [Recovering/Resolving]
  - Skin lesion [Recovering/Resolving]
  - Staphylococcal infection [Recovered/Resolved]
  - Condition aggravated [Recovered/Resolved]

NARRATIVE: CASE EVENT DATE: 201711
